FAERS Safety Report 19507126 (Version 1)
Quarter: 2021Q3

REPORT INFORMATION
  Report Type: Spontaneous
  Country: NL (occurrence: NL)
  Receive Date: 20210708
  Receipt Date: 20210708
  Transmission Date: 20211014
  Serious: Yes (Other)
  Sender: FDA-Public Use
  Company Number: NL-MYLANLABS-2021M1039439

PATIENT
  Age: 62 Year
  Sex: Male

DRUGS (10)
  1. SORAFENIB [Interacting]
     Active Substance: SORAFENIB
     Indication: METASTASES TO LUNG
     Dosage: 600 MILLIGRAM, QD (DOSE INCREASED WITH 50% TO 200MG...
     Route: 065
     Dates: start: 201708
  2. SORAFENIB [Interacting]
     Active Substance: SORAFENIB
     Dosage: 200 MILLIGRAM, BID (SORAFENIB DOSE DECREASED TO 200MG TWICE A DAY...
     Route: 065
     Dates: start: 201802
  3. METFORMIN [Concomitant]
     Active Substance: METFORMIN HYDROCHLORIDE
     Indication: PRODUCT USED FOR UNKNOWN INDICATION
     Dosage: UNK
     Route: 065
  4. TACROLIMUS. [Interacting]
     Active Substance: TACROLIMUS
     Indication: IMMUNOSUPPRESSANT DRUG THERAPY
     Dosage: 3 MILLIGRAM, QD
     Route: 065
     Dates: start: 201706
  5. LOPERAMIDE [Concomitant]
     Active Substance: LOPERAMIDE
     Indication: PRODUCT USED FOR UNKNOWN INDICATION
     Dosage: UNK
     Route: 065
  6. SORAFENIB [Suspect]
     Active Substance: SORAFENIB
     Indication: HEPATOCELLULAR CARCINOMA
     Dosage: 200 MILLIGRAM, BID
     Route: 065
     Dates: start: 201706
  7. METOPROLOL. [Concomitant]
     Active Substance: METOPROLOL
     Indication: PRODUCT USED FOR UNKNOWN INDICATION
     Dosage: UNK
     Route: 065
  8. SORAFENIB [Interacting]
     Active Substance: SORAFENIB
     Dosage: 300 MILLIGRAM, QD
     Route: 065
     Dates: start: 201802, end: 201805
  9. TACROLIMUS. [Interacting]
     Active Substance: TACROLIMUS
     Dosage: 4 MILLIGRAM, QD
     Route: 065
     Dates: start: 201708
  10. LOSARTAN. [Concomitant]
     Active Substance: LOSARTAN
     Indication: PRODUCT USED FOR UNKNOWN INDICATION
     Dosage: UNK
     Route: 065

REACTIONS (3)
  - Drug level decreased [Unknown]
  - Drug interaction [Unknown]
  - Hepatotoxicity [Unknown]

NARRATIVE: CASE EVENT DATE: 2017
